FAERS Safety Report 20726174 (Version 1)
Quarter: 2022Q2

REPORT INFORMATION
  Report Type: Spontaneous
  Country: FR (occurrence: None)
  Receive Date: 20220419
  Receipt Date: 20220419
  Transmission Date: 20220721
  Serious: Yes (Death)
  Sender: FDA-Public Use
  Company Number: 2022A150344

PATIENT
  Age: 66 Year
  Sex: Male
  Weight: 72 kg

DRUGS (9)
  1. TICAGRELOR [Suspect]
     Active Substance: TICAGRELOR
     Indication: Acute coronary syndrome
     Route: 048
     Dates: end: 20220117
  2. COMIRNATY [Suspect]
     Active Substance: TOZINAMERAN
     Indication: COVID-19 immunisation
     Dosage: 1.0DF ONCE/SINGLE ADMINISTRATION
     Route: 051
     Dates: start: 20220104, end: 20220104
  3. ASPIRIN [Suspect]
     Active Substance: ASPIRIN
     Indication: Acute coronary syndrome
     Route: 048
     Dates: end: 20220117
  4. MIRTAZAPINE [Concomitant]
     Active Substance: MIRTAZAPINE
     Route: 065
  5. RAMIPRIL [Concomitant]
     Active Substance: RAMIPRIL
     Route: 065
  6. PANTOPRAZOLE [Concomitant]
     Active Substance: PANTOPRAZOLE
     Route: 065
  7. EZETIMIBE\ROSUVASTATIN [Concomitant]
     Active Substance: EZETIMIBE\ROSUVASTATIN
     Route: 065
  8. BISOPROLOL [Concomitant]
     Active Substance: BISOPROLOL
     Route: 065
  9. NALMEFENE HYDROCHLORIDE DIHYDRATE [Concomitant]
     Active Substance: NALMEFENE HYDROCHLORIDE DIHYDRATE
     Route: 065

REACTIONS (1)
  - Haemorrhagic stroke [Fatal]

NARRATIVE: CASE EVENT DATE: 20220117
